FAERS Safety Report 12427488 (Version 3)
Quarter: 2016Q3

REPORT INFORMATION
  Report Type: Report from Study
  Country: CN (occurrence: CN)
  Receive Date: 20160602
  Receipt Date: 20160701
  Transmission Date: 20161109
  Serious: Yes (Hospitalization)
  Sender: FDA-Public Use
  Company Number: CN-ROCHE-1767049

PATIENT
  Age: 70 Year
  Sex: Male
  Weight: 50 kg

DRUGS (12)
  1. ALBUMIN [Concomitant]
     Active Substance: ALBUMIN HUMAN
     Route: 065
     Dates: start: 20160523, end: 20160531
  2. LACTULOSE. [Concomitant]
     Active Substance: LACTULOSE
     Route: 048
     Dates: start: 20160527, end: 20160531
  3. CAPECITABINE. [Suspect]
     Active Substance: CAPECITABINE
     Dosage: 1500 MG IN MORNING, 1000 MG AT NIGHT.
     Route: 048
     Dates: start: 20160412
  4. MEDIUM AND LONG CHAIN FAT EMULSION INJECTION [Concomitant]
     Active Substance: LIPOSYN (R) INTRAVENOUS FAT EMULSION
     Route: 065
     Dates: start: 20160529, end: 20160531
  5. TRASTUZUMAB [Suspect]
     Active Substance: TRASTUZUMAB
     Indication: HER-2 POSITIVE GASTRIC CANCER
     Dosage: LOADING DOSE AS PER PROTCOL : 8 MG/KG (ON DAY 1 OF 3 WEEK CYCLE)
     Route: 042
     Dates: start: 20160318
  6. TRASTUZUMAB [Suspect]
     Active Substance: TRASTUZUMAB
     Dosage: MAINTAINENCE DOSE. ON 06/MAY/2016, LAST DOSE WAS GIVEN PRIOR TO SAE.
     Route: 041
  7. TRASTUZUMAB [Suspect]
     Active Substance: TRASTUZUMAB
     Route: 041
  8. CAPECITABINE. [Suspect]
     Active Substance: CAPECITABINE
     Indication: HER-2 POSITIVE GASTRIC CANCER
     Dosage: 1500 MG IN MORNING, 1500 MG AT NIGHT. ON 13/MAY/2016, LAST DOSE WAS GIVEN PRIOR TO SAE?DOSE AS PER P
     Route: 048
     Dates: start: 20160318
  9. DOCETAXEL. [Suspect]
     Active Substance: DOCETAXEL
     Indication: HER-2 POSITIVE GASTRIC CANCER
     Dosage: ON 06/MAY/2016, LAST DOSE WAS GIVEN PRIOR TO SAE.?DOSE AS PER PROTOCOL: 60MG/M2 (ON DAY 1) EVERY 3 W
     Route: 041
     Dates: start: 20160318
  10. DOCETAXEL. [Suspect]
     Active Substance: DOCETAXEL
     Route: 041
     Dates: start: 20160412
  11. GLUTATHIONE [Concomitant]
     Active Substance: GLUTATHIONE
     Route: 065
     Dates: start: 20160522, end: 20160524
  12. FUROSEMIDE. [Concomitant]
     Active Substance: FUROSEMIDE
     Route: 065
     Dates: start: 20160523, end: 20160531

REACTIONS (1)
  - Chronic obstructive pulmonary disease [Recovered/Resolved]

NARRATIVE: CASE EVENT DATE: 20160522
